FAERS Safety Report 24628245 (Version 1)
Quarter: 2024Q4

REPORT INFORMATION
  Report Type: Report from Study
  Country: US (occurrence: US)
  Receive Date: 20241117
  Receipt Date: 20241117
  Transmission Date: 20250114
  Serious: Yes (Hospitalization, Other)
  Sender: AUROBINDO
  Company Number: US-AUROBINDO-AUR-APL-2024-055562

PATIENT

DRUGS (4)
  1. CYCLOPHOSPHAMIDE [Suspect]
     Active Substance: CYCLOPHOSPHAMIDE
     Indication: Graft versus host disease
     Dosage: 50 MG/ KG/DOSE ON DAY 3
     Route: 065
  2. MYCOPHENOLIC ACID [Suspect]
     Active Substance: MYCOPHENOLIC ACID
     Indication: Graft versus host disease
     Dosage: 15 MG/KG/DOSE CAPPED AT 1000MG GIVEN THRICE DAILY THROUGH DAY 35
     Route: 065
  3. TACROLIMUS [Suspect]
     Active Substance: TACROLIMUS
     Indication: Graft versus host disease
     Dosage: CONCENTRATION BETWEEN 10 AND 15 NG/ML
     Route: 065
  4. MESNA [Concomitant]
     Active Substance: MESNA
     Indication: Graft versus host disease
     Dosage: UNK
     Route: 065

REACTIONS (2)
  - Cytokine release syndrome [Unknown]
  - Drug ineffective [Unknown]
